FAERS Safety Report 22374143 (Version 1)
Quarter: 2023Q2

REPORT INFORMATION
  Report Type: Spontaneous
  Country: US (occurrence: US)
  Receive Date: 20230526
  Receipt Date: 20230526
  Transmission Date: 20230721
  Serious: Yes (Hospitalization, Other)
  Sender: FDA-Public Use
  Company Number: US-009507513-2305USA005634

PATIENT
  Sex: Female
  Weight: 75 kg

DRUGS (4)
  1. BRIDION [Suspect]
     Active Substance: SUGAMMADEX
     Indication: Neuromuscular blockade reversal
     Dosage: 4 MILLIGRAM/KILOGRAM, ONCE
  2. BRIDION [Suspect]
     Active Substance: SUGAMMADEX
     Dosage: 200 MILLIGRAM
  3. ROCURONIUM [Suspect]
     Active Substance: ROCURONIUM BROMIDE
     Dosage: 317 MILLIGRAM, OVER 7 HOURS
     Route: 041
  4. PROPOFOL [Suspect]
     Active Substance: PROPOFOL
     Route: 041

REACTIONS (3)
  - Recurrence of neuromuscular blockade [Recovered/Resolved]
  - Therapeutic product effect incomplete [Unknown]
  - Extra dose administered [Unknown]
